FAERS Safety Report 4755301-4 (Version None)
Quarter: 2005Q3

REPORT INFORMATION
  Report Type: 
  Country: None (occurrence: None)
  Receive Date: 20050826
  Receipt Date: 20041028
  Transmission Date: 20060218
  Serious: Yes (Hospitalization)
  Sender: FDA-Public Use
  Company Number: KII-2002-0002294

PATIENT
  Sex: Female

DRUGS (2)
  1. OXYCONTIN [Suspect]
     Indication: PAIN
     Dosage: 160 MG
  2. HYDROCODONE (HYDROCODONE) [Suspect]
     Indication: PAIN

REACTIONS (2)
  - DRUG WITHDRAWAL SYNDROME [None]
  - NAUSEA [None]
